FAERS Safety Report 25232724 (Version 1)
Quarter: 2025Q2

REPORT INFORMATION
  Report Type: Spontaneous
  Country: US (occurrence: US)
  Receive Date: 20250424
  Receipt Date: 20250424
  Transmission Date: 20250717
  Serious: No
  Sender: SANOFI AVENTIS
  Company Number: US-SA-2025SA117444

PATIENT
  Age: 42 Year
  Sex: Male

DRUGS (8)
  1. DUPIXENT [Suspect]
     Active Substance: DUPILUMAB
     Indication: Dermatitis atopic
     Dosage: 300 MG, QOW
     Route: 058
     Dates: start: 20240726
  2. AZITHROMYCIN [Concomitant]
     Active Substance: AZITHROMYCIN
  3. CLOBETASOL [Concomitant]
     Active Substance: CLOBETASOL
  4. DIAZEPAM [Concomitant]
     Active Substance: DIAZEPAM
  5. MONTELUKAST [Concomitant]
     Active Substance: MONTELUKAST
  6. PREDNISONE [Concomitant]
     Active Substance: PREDNISONE
  7. FLUTICASONE PROPIONATE\SALMETEROL XINAFOATE [Concomitant]
     Active Substance: FLUTICASONE PROPIONATE\SALMETEROL XINAFOATE
  8. IBUPROFEN [Concomitant]
     Active Substance: IBUPROFEN

REACTIONS (2)
  - Sleep disorder due to a general medical condition [Not Recovered/Not Resolved]
  - Drug ineffective [Unknown]

NARRATIVE: CASE EVENT DATE: 20250301
